FAERS Safety Report 5852659-X (Version None)
Quarter: 2008Q3

REPORT INFORMATION
  Report Type: 
  Country: None (occurrence: None)
  Receive Date: 20080821
  Receipt Date: 20080819
  Transmission Date: 20090109
  Serious: Yes (Hospitalization)
  Sender: FDA-Public Use
  Company Number: B0533803A

PATIENT
  Age: 55 Year
  Sex: Female
  Weight: 54 kg

DRUGS (2)
  1. LAPATINIB [Suspect]
     Dosage: 1250MG PER DAY
     Route: 048
     Dates: start: 20080704
  2. CAPECITABINE [Suspect]
     Dosage: 3040MG PER DAY
     Route: 048
     Dates: start: 20080704

REACTIONS (3)
  - ASTHENIA [None]
  - DIARRHOEA [None]
  - HYPERTHERMIA [None]
